FAERS Safety Report 11436200 (Version 1)
Quarter: 2015Q3

REPORT INFORMATION
  Report Type: Spontaneous
  Country: US (occurrence: US)
  Receive Date: 20150821
  Receipt Date: 20150821
  Transmission Date: 20151125
  Serious: No
  Sender: FDA-Public Use
  Company Number: US-ELI_LILLY_AND_COMPANY-US201404002516

PATIENT
  Sex: Female

DRUGS (13)
  1. XANAX [Concomitant]
     Active Substance: ALPRAZOLAM
  2. NITROSTAT [Concomitant]
     Active Substance: NITROGLYCERIN
  3. VITAMIN D                          /00107901/ [Concomitant]
     Active Substance: ERGOCALCIFEROL
  4. HUMULIN N [Suspect]
     Active Substance: INSULIN HUMAN
     Dosage: UNK
     Dates: start: 1991
  5. NOVOLIN R [Concomitant]
     Active Substance: INSULIN HUMAN
  6. AVAPRO [Concomitant]
     Active Substance: IRBESARTAN
  7. SPIRONOLACTONE. [Concomitant]
     Active Substance: SPIRONOLACTONE
  8. COREG [Concomitant]
     Active Substance: CARVEDILOL
  9. ASPIRIN. [Concomitant]
     Active Substance: ASPIRIN
  10. HUMULIN N [Suspect]
     Active Substance: INSULIN HUMAN
     Indication: TYPE 2 DIABETES MELLITUS
     Dosage: UNK
     Route: 065
     Dates: start: 1991
  11. HUMULIN N [Suspect]
     Active Substance: INSULIN HUMAN
     Indication: TYPE 2 DIABETES MELLITUS
     Dosage: UNK
     Route: 065
  12. PREMARIN [Concomitant]
     Active Substance: ESTROGENS, CONJUGATED
  13. FUROSEMIDE. [Concomitant]
     Active Substance: FUROSEMIDE

REACTIONS (3)
  - Presyncope [Unknown]
  - Dry mouth [Unknown]
  - Blood glucose decreased [Unknown]
